FAERS Safety Report 9263707 (Version 1)
Quarter: 2013Q2

REPORT INFORMATION
  Report Type: Spontaneous
  Country: US (occurrence: US)
  Receive Date: 20130430
  Receipt Date: 20130430
  Transmission Date: 20140414
  Serious: No
  Sender: FDA-Public Use
  Company Number: US-COVIDIEN/TYCO HEALTHCARE/MALLINCKRODT-T201301399

PATIENT
  Sex: 0

DRUGS (1)
  1. CYSTO-CONRAY II [Suspect]
     Indication: PRODUCT USED FOR UNKNOWN INDICATION
     Dosage: 10 ML, SINGLE
     Route: 058
     Dates: start: 201303, end: 201303

REACTIONS (1)
  - Incorrect route of drug administration [Unknown]
